FAERS Safety Report 6483094-1 (Version None)
Quarter: 2009Q4

REPORT INFORMATION
  Report Type: 
  Country: None (occurrence: None)
  Receive Date: 20091209
  Receipt Date: 20091130
  Transmission Date: 20100525
  Serious: Yes (Life-Threatening, Other)
  Sender: FDA-Public Use
  Company Number: US-ROCHE-663074

PATIENT
  Age: 51 Year
  Sex: Female

DRUGS (6)
  1. TAMIFLU [Suspect]
     Indication: H1N1 INFLUENZA
     Route: 048
  2. TAMIFLU [Suspect]
     Dosage: TAKEN FOR 8 DAYS
     Route: 048
  3. IMMUNE GLOBULIN INTRAVENOUS (HUMAN) [Concomitant]
     Dosage: RECEIVED ONE DOSE AFTER 3 OR 4 OSELTAMIVIR DOSES
     Route: 042
  4. VANCOMYCIN [Concomitant]
     Indication: PNEUMOTHORAX
     Dosage: TAKEN FOR 8 DAYS
  5. BACTRIM [Concomitant]
     Dosage: TAKEN FOR 8 DAYS
  6. ZOSYN [Concomitant]
     Dosage: TAKEN FOR 8 DAYS

REACTIONS (3)
  - DRUG INEFFECTIVE [None]
  - RESPIRATORY DISORDER [None]
  - RESPIRATORY DISTRESS [None]
